FAERS Safety Report 5493221-0 (Version None)
Quarter: 2007Q4

REPORT INFORMATION
  Report Type: 
  Country: None (occurrence: None)
  Receive Date: 20071023
  Receipt Date: 20071018
  Transmission Date: 20080405
  Serious: Yes (Life-Threatening, Hospitalization)
  Sender: FDA-Public Use
  Company Number: B0492088B

PATIENT
  Sex: Male

DRUGS (5)
  1. CLAMOXYL [Suspect]
     Dates: start: 20070922, end: 20070922
  2. TEGRETOL [Suspect]
     Dosage: 400MG PER DAY
  3. BUPIVACAINE [Suspect]
     Dates: start: 20070922, end: 20070922
  4. SYNTOCINON [Suspect]
     Dates: start: 20070922, end: 20070922
  5. SPASFON [Suspect]
     Dates: start: 20070922, end: 20070922

REACTIONS (6)
  - APGAR SCORE LOW [None]
  - APNOEA [None]
  - CARDIAC ARREST [None]
  - CARDIAC MURMUR [None]
  - HYPOXIA [None]
  - PULMONARY ARTERY STENOSIS CONGENITAL [None]
